FAERS Safety Report 15259702 (Version 2)
Quarter: 2018Q4

REPORT INFORMATION
  Report Type: Spontaneous
  Country: US (occurrence: US)
  Receive Date: 20180809
  Receipt Date: 20180904
  Transmission Date: 20190204
  Serious: Yes (Death, Other)
  Sender: FDA-Public Use
  Company Number: US-HIKMA PHARMACEUTICALS USA INC.-US-H14001-18-06393

PATIENT
  Age: 25 Year
  Sex: Female

DRUGS (3)
  1. ALTEPLASE 1 [Concomitant]
     Indication: THROMBOSIS
     Route: 065
  2. HYDROXYUREA. [Concomitant]
     Active Substance: HYDROXYUREA
     Indication: SICKLE CELL DISEASE
     Route: 065
  3. HYDROMORPHONE [Suspect]
     Active Substance: HYDROMORPHONE
     Indication: PAIN
     Route: 042

REACTIONS (8)
  - Depression [Unknown]
  - Drug abuse [Unknown]
  - Myocardial infarction [Fatal]
  - Drug dependence [Unknown]
  - Prescription drug used without a prescription [Unknown]
  - Overdose [Unknown]
  - Intentional product use issue [Unknown]
  - Pulmonary embolism [Fatal]
